FAERS Safety Report 6168642-3 (Version None)
Quarter: 2009Q2

REPORT INFORMATION
  Report Type: 
  Country: None (occurrence: None)
  Receive Date: 20090427
  Receipt Date: 20090415
  Transmission Date: 20091009
  Serious: Yes (Other)
  Sender: FDA-Public Use
  Company Number: NL-ELI_LILLY_AND_COMPANY-NL200902002207

PATIENT
  Sex: Male

DRUGS (6)
  1. CYMBALTA [Suspect]
     Indication: NEURALGIA
     Dosage: 30 MG, DAILY (1/D)
     Route: 065
     Dates: start: 20090202, end: 20090303
  2. TEMAZEPAM [Concomitant]
     Dosage: 10 MG, DAILY (1/D)
     Route: 065
  3. BRUFEN [Concomitant]
     Dosage: 600 MG, 3/D
     Route: 065
  4. MORFIN [Concomitant]
     Dosage: 30 MG, DAILY (1/D)
     Route: 065
  5. SIMVASTATIN [Concomitant]
     Dosage: 20 MG, DAILY (1/D)
     Route: 065
  6. MICONAZOLE [Concomitant]
     Dosage: 10 MG, 2/D
     Route: 065
     Dates: start: 20090119

REACTIONS (4)
  - ASTHENIA [None]
  - DEPERSONALISATION [None]
  - DEREALISATION [None]
  - PANIC DISORDER [None]
